FAERS Safety Report 10070123 (Version 1)
Quarter: 2014Q2

REPORT INFORMATION
  Report Type: Spontaneous
  Country: US (occurrence: US)
  Receive Date: 20140410
  Receipt Date: 20140410
  Transmission Date: 20141212
  Serious: Yes (Other)
  Sender: FDA-Public Use
  Company Number: US-INCYTE CORPORATION-2014IN000892

PATIENT
  Sex: 0

DRUGS (2)
  1. JAKAFI [Suspect]
     Indication: MYELOFIBROSIS
     Dosage: NOT SPECIFIED
  2. JAKAFI [Suspect]
     Indication: MYELODYSPLASTIC SYNDROME

REACTIONS (2)
  - Gastrointestinal haemorrhage [Unknown]
  - Platelet count decreased [Unknown]
